FAERS Safety Report 14771823 (Version 1)
Quarter: 2018Q2

REPORT INFORMATION
  Report Type: Spontaneous
  Country: US (occurrence: US)
  Receive Date: 20180417
  Receipt Date: 20180417
  Transmission Date: 20180711
  Serious: No
  Sender: FDA-Public Use
  Company Number: US-ALLERGAN-1755399US

PATIENT
  Sex: Female

DRUGS (2)
  1. LATISSE [Suspect]
     Active Substance: BIMATOPROST
     Indication: GROWTH OF EYELASHES
     Dosage: UNK UNK, QD
     Route: 061
     Dates: end: 201708
  2. HERCEPTIN [Concomitant]
     Active Substance: TRASTUZUMAB
     Indication: IMMUNE ENHANCEMENT THERAPY
     Dosage: UNK
     Route: 065

REACTIONS (2)
  - Eye inflammation [Recovered/Resolved]
  - Ocular hyperaemia [Recovered/Resolved]
